FAERS Safety Report 9849582 (Version 1)
Quarter: 2014Q1

REPORT INFORMATION
  Report Type: Spontaneous
  Country: US (occurrence: None)
  Receive Date: 20140124
  Receipt Date: 20140124
  Transmission Date: 20141002
  Serious: Yes (Other)
  Sender: FDA-Public Use
  Company Number: None

PATIENT
  Age: 81 Year
  Sex: Female
  Weight: 57.15 kg

DRUGS (8)
  1. LEVOFLOXACIN [Suspect]
     Indication: NASOPHARYNGITIS
     Dosage: 500 MG?10 PILLS?1 DAILY?BY MOUTH
     Route: 048
     Dates: start: 20131209, end: 20131213
  2. LEVOFLOXACIN [Suspect]
     Indication: OROPHARYNGEAL PAIN
     Dosage: 500 MG?10 PILLS?1 DAILY?BY MOUTH
     Route: 048
     Dates: start: 20131209, end: 20131213
  3. NEXIUM [Concomitant]
  4. LOSARTAN [Concomitant]
  5. CALCIUM [Concomitant]
  6. PROBIOTICS [Concomitant]
  7. IRON [Concomitant]
  8. ASPIRIN [Concomitant]

REACTIONS (3)
  - Arthralgia [None]
  - Myalgia [None]
  - Gait disturbance [None]
